FAERS Safety Report 24376766 (Version 1)
Quarter: 2024Q3

REPORT INFORMATION
  Report Type: Spontaneous
  Country: US (occurrence: US)
  Receive Date: 20240930
  Receipt Date: 20240930
  Transmission Date: 20241017
  Serious: No
  Sender: SANOFI AVENTIS
  Company Number: US-SA-2024SA277586

PATIENT
  Sex: Male
  Weight: 105.45 kg

DRUGS (1)
  1. DUPIXENT [Suspect]
     Active Substance: DUPILUMAB
     Indication: Dermatitis
     Dosage: UNK

REACTIONS (3)
  - Sinus disorder [Unknown]
  - Sneezing [Unknown]
  - Product use in unapproved indication [Unknown]
